FAERS Safety Report 21396217 (Version 1)
Quarter: 2022Q3

REPORT INFORMATION
  Report Type: Spontaneous
  Country: US (occurrence: None)
  Receive Date: 20220928
  Receipt Date: 20220928
  Transmission Date: 20221026
  Serious: No
  Sender: FDA-Public Use
  Company Number: None

PATIENT
  Age: 61 Year
  Sex: Female

DRUGS (1)
  1. GAMMAGARD LIQUID [Suspect]
     Active Substance: HUMAN IMMUNOGLOBULIN G
     Indication: Chronic inflammatory demyelinating polyradiculoneuropathy
     Dosage: OTHER QUANTITY : 35 GM ;?OTHER FREQUENCY : EVERY 3 WEEKS;?
     Route: 042
     Dates: start: 20210912

REACTIONS (3)
  - Decreased appetite [None]
  - Dyspnoea [None]
  - Carbon dioxide abnormal [None]

NARRATIVE: CASE EVENT DATE: 20220921
